FAERS Safety Report 10206641 (Version 3)
Quarter: 2015Q1

REPORT INFORMATION
  Report Type: Spontaneous
  Country: US (occurrence: US)
  Receive Date: 20140530
  Receipt Date: 20150112
  Transmission Date: 20150720
  Serious: Yes (Death, Hospitalization)
  Sender: FDA-Public Use
  Company Number: US-SA-2014SA067489

PATIENT
  Age: 41 Year
  Sex: Male

DRUGS (6)
  1. BENADRYL [Concomitant]
     Active Substance: DIPHENHYDRAMINE HYDROCHLORIDE
     Indication: PREMEDICATION
     Dosage: 25-50 MG PO EVERY 8 HOURS AS NEEDED
  2. FABRAZYME [Suspect]
     Active Substance: AGALSIDASE BETA
     Indication: FABRY^S DISEASE
     Route: 042
  3. ASPIRIN. [Concomitant]
     Active Substance: ASPIRIN
  4. HEPARIN [Concomitant]
     Active Substance: HEPARIN SODIUM
  5. ZYRTEC [Concomitant]
     Active Substance: CETIRIZINE HYDROCHLORIDE
     Indication: PREMEDICATION
  6. PREDNISONE. [Concomitant]
     Active Substance: PREDNISONE
     Indication: PREMEDICATION

REACTIONS (6)
  - Road traffic accident [Unknown]
  - Cardiac arrest [Recovered/Resolved]
  - Atrial fibrillation [Not Recovered/Not Resolved]
  - Disease complication [Fatal]
  - Injury [Not Recovered/Not Resolved]
  - Neurological decompensation [Not Recovered/Not Resolved]

NARRATIVE: CASE EVENT DATE: 201405
